FAERS Safety Report 8510964-2 (Version None)
Quarter: 2012Q3

REPORT INFORMATION
  Report Type: 
  Country: None (occurrence: None)
  Receive Date: 20120716
  Receipt Date: 20120705
  Transmission Date: 20120928
  Serious: Yes (Other)
  Sender: FDA-Public Use
  Company Number: JP-JNJFOC-20120303081

PATIENT
  Age: 69 Year
  Sex: Male

DRUGS (7)
  1. STELARA [Suspect]
     Route: 058
     Dates: start: 20111012
  2. DIFLORASONE DIACETATE [Concomitant]
     Indication: PSORIASIS
     Route: 061
  3. STELARA [Suspect]
     Route: 058
     Dates: start: 20111109
  4. ZYRTEC [Concomitant]
     Indication: PSORIASIS
     Route: 048
  5. MUCODYNE [Concomitant]
     Route: 048
  6. STELARA [Suspect]
     Indication: PSORIASIS
     Route: 058
     Dates: start: 20120314
  7. VARENICLINE TARTRATE [Concomitant]
     Route: 048
     Dates: start: 20111109

REACTIONS (1)
  - INTERSTITIAL LUNG DISEASE [None]
